FAERS Safety Report 8530433-3 (Version None)
Quarter: 2012Q3

REPORT INFORMATION
  Report Type: 
  Country: None (occurrence: None)
  Receive Date: 20120723
  Receipt Date: 20120717
  Transmission Date: 20120928
  Serious: Yes (Hospitalization)
  Sender: FDA-Public Use
  Company Number: FR-SANOFI-AVENTIS-2012SA050592

PATIENT
  Age: 40 Year
  Sex: Male

DRUGS (10)
  1. ACETAMINOPHEN [Concomitant]
  2. FOSFOCINE [Suspect]
     Route: 065
     Dates: start: 20120514, end: 20120522
  3. GLUCIDION [Concomitant]
  4. TRAMADOL HCL [Concomitant]
  5. CLAFORAN [Suspect]
     Route: 065
     Dates: start: 20120602, end: 20120604
  6. CLAFORAN [Suspect]
     Route: 065
     Dates: start: 20120514, end: 20120522
  7. LOVENOX [Concomitant]
  8. ZOFRAN [Concomitant]
  9. NEXIUM [Concomitant]
  10. VANCOMYCIN [Suspect]
     Route: 065
     Dates: start: 20120514, end: 20120522

REACTIONS (4)
  - HYPERSENSITIVITY [None]
  - RENAL FAILURE ACUTE [None]
  - ACUTE GENERALISED EXANTHEMATOUS PUSTULOSIS [None]
  - LIVER DISORDER [None]
